FAERS Safety Report 4640930-9 (Version None)
Quarter: 2005Q2

REPORT INFORMATION
  Report Type: 
  Country: None (occurrence: None)
  Receive Date: 20050324
  Receipt Date: 20050222
  Transmission Date: 20051028
  Serious: No
  Sender: FDA-Public Use
  Company Number: 212620

PATIENT
  Age: 70 Year
  Sex: Male

DRUGS (6)
  1. AVASTIN [Suspect]
     Indication: COLORECTAL CANCER
     Dosage: 400 MG INTRAVENOUS
     Route: 042
     Dates: start: 20050101
  2. 5-FU (FLOUROURACIL) [Concomitant]
  3. OXALIPLATIN [Concomitant]
  4. LEUCOVORIN CALCIUM [Concomitant]
  5. KYTRIL [Concomitant]
  6. HEXADROL (DEXAMETHASONE) [Concomitant]

REACTIONS (1)
  - ERECTILE DYSFUNCTION [None]
